FAERS Safety Report 19376082 (Version 2)
Quarter: 2021Q2

REPORT INFORMATION
  Report Type: Spontaneous
  Country: JP (occurrence: JP)
  Receive Date: 20210604
  Receipt Date: 20210605
  Transmission Date: 20210717
  Serious: Yes (Life-Threatening, Hospitalization)
  Sender: FDA-Public Use
  Company Number: JP-ABBVIE-20K-087-3620958-00

PATIENT
  Age: 26 Year
  Sex: Female

DRUGS (8)
  1. PREDNISOLONE. [Concomitant]
     Active Substance: PREDNISOLONE
     Route: 048
     Dates: start: 20200207, end: 20200213
  2. CYCLOSPORIN [Concomitant]
     Active Substance: CYCLOSPORINE
     Indication: IMPETIGO HERPETIFORMIS
     Route: 048
     Dates: start: 20200125, end: 20200213
  3. PREDNISOLONE. [Concomitant]
     Active Substance: PREDNISOLONE
     Indication: IMPETIGO HERPETIFORMIS
     Dates: start: 20200127, end: 20200206
  4. LEVOTHYROXINE SODIUM. [Concomitant]
     Active Substance: LEVOTHYROXINE SODIUM
     Indication: BASEDOW^S DISEASE
     Route: 048
  5. CERTOLIZUMAB PEGOL RECOMBINANT [Concomitant]
     Active Substance: CERTOLIZUMAB PEGOL
     Indication: IMPETIGO HERPETIFORMIS
     Route: 058
     Dates: start: 20200129, end: 20200312
  6. PREDNISOLONE. [Concomitant]
     Active Substance: PREDNISOLONE
     Dates: start: 20200214, end: 20200312
  7. HUMIRA [Suspect]
     Active Substance: ADALIMUMAB
     Indication: IMPETIGO HERPETIFORMIS
     Route: 058
     Dates: start: 20200115, end: 20200115
  8. CYCLOSPORIN [Concomitant]
     Active Substance: CYCLOSPORINE

REACTIONS (5)
  - Drug ineffective for unapproved indication [Unknown]
  - Impetigo herpetiformis [Recovered/Resolved]
  - Live birth [Unknown]
  - Off label use [Unknown]
  - Maternal exposure during pregnancy [Unknown]

NARRATIVE: CASE EVENT DATE: 20200129
